FAERS Safety Report 13520692 (Version 1)
Quarter: 2017Q2

REPORT INFORMATION
  Report Type: Spontaneous
  Country: US (occurrence: US)
  Receive Date: 20170508
  Receipt Date: 20170508
  Transmission Date: 20170830
  Serious: Yes (Hospitalization)
  Sender: FDA-Public Use
  Company Number: US-ASTRAZENECA-2017SE46984

PATIENT
  Sex: Female

DRUGS (7)
  1. PULMICORT FLEXHALER [Suspect]
     Active Substance: BUDESONIDE
     Indication: CHRONIC OBSTRUCTIVE PULMONARY DISEASE
     Route: 055
     Dates: start: 2012
  2. PULMICORT FLEXHALER [Suspect]
     Active Substance: BUDESONIDE
     Indication: BRONCHITIS CHRONIC
     Route: 055
     Dates: start: 2012
  3. PULMICORT FLEXHALER [Suspect]
     Active Substance: BUDESONIDE
     Indication: ASTHMA
     Route: 055
     Dates: start: 2012
  4. METFORMIN [Concomitant]
     Active Substance: METFORMIN HYDROCHLORIDE
     Indication: TYPE 2 DIABETES MELLITUS
  5. XOPENEX [Concomitant]
     Active Substance: LEVALBUTEROL HYDROCHLORIDE
     Indication: ILL-DEFINED DISORDER
     Dosage: AS REQUIRED
     Route: 055
  6. ALBUTEROL. [Concomitant]
     Active Substance: ALBUTEROL
     Dosage: UNK, EVERY SIX HOURS
     Route: 055
     Dates: start: 201702
  7. INCRUSE ELLIPTA [Concomitant]
     Active Substance: UMECLIDINIUM BROMIDE
     Dosage: DAILY
     Route: 055
     Dates: start: 201702

REACTIONS (8)
  - Hypoacusis [Unknown]
  - Influenza [Unknown]
  - Pneumonia [Unknown]
  - Blood pressure abnormal [Unknown]
  - Dysphonia [Unknown]
  - Diabetes mellitus [Unknown]
  - Bronchitis [Unknown]
  - Product use issue [Unknown]

NARRATIVE: CASE EVENT DATE: 2012
